FAERS Safety Report 24155067 (Version 1)
Quarter: 2024Q3

REPORT INFORMATION
  Report Type: Spontaneous
  Country: PL (occurrence: PL)
  Receive Date: 20240731
  Receipt Date: 20240731
  Transmission Date: 20241017
  Serious: Yes (Death, Other)
  Sender: ROCHE
  Company Number: PL-ROCHE-10000034086

PATIENT
  Age: 41 Year
  Sex: Male

DRUGS (2)
  1. HERCEPTIN [Suspect]
     Active Substance: TRASTUZUMAB
     Indication: Gastric cancer
     Route: 065
  2. HERCEPTIN [Suspect]
     Active Substance: TRASTUZUMAB
     Indication: Lymphoma

REACTIONS (2)
  - Disease progression [Unknown]
  - Death [Fatal]
